FAERS Safety Report 10392526 (Version 1)
Quarter: 2014Q3

REPORT INFORMATION
  Report Type: Spontaneous
  Country: US (occurrence: US)
  Receive Date: 20140819
  Receipt Date: 20140819
  Transmission Date: 20150326
  Serious: No
  Sender: FDA-Public Use
  Company Number: US-PFIZER INC-2014227286

PATIENT
  Age: 59 Year
  Sex: Female
  Weight: 74.83 kg

DRUGS (2)
  1. LYRICA [Suspect]
     Active Substance: PREGABALIN
     Indication: FIBROMYALGIA
     Dosage: UNK
     Dates: start: 2009, end: 201401
  2. LYRICA [Suspect]
     Active Substance: PREGABALIN
     Dosage: 200 MG, UNK
     Dates: start: 201401, end: 2014

REACTIONS (3)
  - Anxiety [Not Recovered/Not Resolved]
  - Back pain [Not Recovered/Not Resolved]
  - Depression [Not Recovered/Not Resolved]

NARRATIVE: CASE EVENT DATE: 201401
